FAERS Safety Report 9201211 (Version 1)
Quarter: 2013Q2

REPORT INFORMATION
  Report Type: Spontaneous
  Country: GB (occurrence: GB)
  Receive Date: 20130401
  Receipt Date: 20130401
  Transmission Date: 20140414
  Serious: Yes (Other)
  Sender: FDA-Public Use
  Company Number: PHHY2013GB028977

PATIENT
  Age: 57 Year
  Sex: Male
  Weight: 70 kg

DRUGS (3)
  1. ZOLEDRONATE [Suspect]
     Indication: OSTEOPOROSIS
     Dosage: 5 MG (STOPPED ON THE SAME DAY)
     Route: 042
     Dates: start: 201203
  2. RAMIPRIL [Concomitant]
     Indication: HYPERTENSION
     Dosage: 2.5 MG, (STARTED OVER 3 YEARS AGO)
     Route: 048
  3. AMITRIPTYLINE [Concomitant]
     Indication: PAIN
     Dosage: 20 MG, (STARTED OVER 3 YEARS AGO)
     Route: 048

REACTIONS (2)
  - Proctitis [Not Recovered/Not Resolved]
  - Change of bowel habit [Not Recovered/Not Resolved]
